FAERS Safety Report 6885178-2 (Version None)
Quarter: 2010Q3

REPORT INFORMATION
  Report Type: 
  Country: None (occurrence: None)
  Receive Date: 20100727
  Receipt Date: 20100715
  Transmission Date: 20110219
  Serious: Yes (Hospitalization)
  Sender: FDA-Public Use
  Company Number: ES-BAXTER-2010BH019246

PATIENT
  Age: 36 Year
  Sex: Male

DRUGS (5)
  1. ENDOXAN BAXTER [Suspect]
     Indication: IMMUNOSUPPRESSION
     Route: 048
     Dates: start: 20100101
  2. VFEND [Suspect]
     Indication: ANTIFUNGAL PROPHYLAXIS
     Route: 048
     Dates: start: 20100101
  3. ACYCLOVIR [Suspect]
     Indication: ANTIVIRAL PROPHYLAXIS
     Route: 048
     Dates: start: 20100101
  4. SEPTRIN [Suspect]
     Indication: ANTIBIOTIC PROPHYLAXIS
     Route: 048
     Dates: start: 20100101
  5. MAGNESIUM [Concomitant]
     Indication: PRODUCT USED FOR UNKNOWN INDICATION
     Route: 065

REACTIONS (1)
  - PERIPHERAL SENSORIMOTOR NEUROPATHY [None]
